FAERS Safety Report 8112038 (Version 2)
Quarter: 2012Q4

REPORT INFORMATION
  Report Type: 
  Country: TW (occurrence: TW)
  Receive Date: 20110830
  Receipt Date: 20120919
  Transmission Date: 20130627
  Serious: Yes (Death, Other)
  Sender: FDA-Public Use
  Company Number: TW-RANBAXY-2011RR-47036

PATIENT
  Age: 34 Year
  Sex: Female

DRUGS (3)
  1. ZOLPIDEM [Suspect]
     Indication: INSOMNIA
     Dosage: 100 mg
     Route: 048
  2. ZOLPIDEM [Suspect]
     Indication: INSOMNIA
     Dosage: 250 mg per day
     Route: 048
  3. OLANZAPINE [Concomitant]
     Indication: PRODUCT USED FOR UNKNOWN INDICATION
     Dosage: UNK
     Route: 065

REACTIONS (4)
  - Drug dependence [Recovering/Resolving]
  - Drug abuse [Recovering/Resolving]
  - Drug withdrawal syndrome [Recovering/Resolving]
  - Delirium [Recovering/Resolving]
